FAERS Safety Report 7627466-8 (Version None)
Quarter: 2011Q3

REPORT INFORMATION
  Report Type: 
  Country: None (occurrence: None)
  Receive Date: 20110721
  Receipt Date: 20110718
  Transmission Date: 20111222
  Serious: Yes (Other)
  Sender: FDA-Public Use
  Company Number: US-AMGEN-USASP2011036586

PATIENT
  Age: 94 Year
  Sex: Male
  Weight: 74.4 kg

DRUGS (3)
  1. DACOGEN [Concomitant]
  2. NEUPOGEN [Suspect]
     Indication: MYELODYSPLASTIC SYNDROME
  3. NEULASTA [Suspect]
     Indication: MYELODYSPLASTIC SYNDROME
     Dates: start: 20110531, end: 20110601

REACTIONS (7)
  - ARTHRALGIA [None]
  - RIB FRACTURE [None]
  - PAIN [None]
  - JOINT SWELLING [None]
  - JOINT WARMTH [None]
  - MOBILITY DECREASED [None]
  - FALL [None]
